FAERS Safety Report 9603170 (Version 2)
Quarter: 2013Q4

REPORT INFORMATION
  Report Type: Spontaneous
  Country: CA (occurrence: CA)
  Receive Date: 20131007
  Receipt Date: 20131008
  Transmission Date: 20140711
  Serious: Yes (Hospitalization)
  Sender: FDA-Public Use
  Company Number: CA-009507513-1309CAN013555

PATIENT
  Age: 50 Year
  Sex: Male

DRUGS (2)
  1. VICTRELIS [Suspect]
     Indication: HEPATITIS C
     Dosage: UNK
     Route: 048
     Dates: start: 20130723
  2. PEGETRON [Suspect]
     Indication: HEPATITIS C
     Dosage: 0.5 ML, UNK
     Dates: start: 20130723

REACTIONS (4)
  - Hospitalisation [Unknown]
  - Drug dose omission [Unknown]
  - Product quality issue [Unknown]
  - Fatigue [Unknown]
